FAERS Safety Report 10214964 (Version 1)
Quarter: 2014Q2

REPORT INFORMATION
  Report Type: Spontaneous
  Country: ES (occurrence: ES)
  Receive Date: 20140603
  Receipt Date: 20140603
  Transmission Date: 20141212
  Serious: Yes (Life-Threatening, Hospitalization)
  Sender: FDA-Public Use
  Company Number: ES-DSJP-DSU-2014-109628

PATIENT
  Sex: 0

DRUGS (6)
  1. OPENVAS 40 MG [Suspect]
     Indication: HYPERTENSION
     Dosage: 40 MG, QD
     Route: 048
     Dates: end: 20130830
  2. TORASEMIDE [Suspect]
     Indication: HYPERTENSION
     Dosage: 5 MG, QD
     Route: 048
     Dates: start: 20130529, end: 20130830
  3. DOXAZOSIN MESILATE [Suspect]
     Indication: HYPERTENSION
     Dosage: 4 MG, QD
     Route: 048
     Dates: end: 20130830
  4. INSULATARD [Concomitant]
     Indication: PRODUCT USED FOR UNKNOWN INDICATION
     Dosage: UNK
  5. ZYLORIC ^FAES^ [Concomitant]
     Indication: PRODUCT USED FOR UNKNOWN INDICATION
     Dosage: UNK
  6. OXIS TURBUH [Concomitant]
     Indication: PRODUCT USED FOR UNKNOWN INDICATION
     Dosage: UNK
     Dates: start: 2013

REACTIONS (3)
  - Drug interaction [Recovered/Resolved]
  - Hyperkalaemia [Recovered/Resolved]
  - Renal failure acute [Recovered/Resolved]
